FAERS Safety Report 9096369 (Version 1)
Quarter: 2013Q1

REPORT INFORMATION
  Report Type: Report from Study
  Country: BR (occurrence: BR)
  Receive Date: 20130207
  Receipt Date: 20130207
  Transmission Date: 20140127
  Serious: Yes (Hospitalization)
  Sender: FDA-Public Use
  Company Number: BR-US-EMD SERONO, INC.-7192107

PATIENT
  Age: 28 Year
  Sex: Male

DRUGS (6)
  1. REBIF [Suspect]
     Indication: RELAPSING-REMITTING MULTIPLE SCLEROSIS
     Dates: start: 20130104
  2. VITAMIN D PLUS VITAMIN A [Concomitant]
     Indication: PRODUCT USED FOR UNKNOWN INDICATION
  3. COD-LIVER OIL [Concomitant]
     Indication: PRODUCT USED FOR UNKNOWN INDICATION
  4. DYPIRONE (DIPYRONE) [Concomitant]
     Indication: PRODUCT USED FOR UNKNOWN INDICATION
  5. IBUPROFEN [Concomitant]
     Indication: PRODUCT USED FOR UNKNOWN INDICATION
  6. OMEPRAZOLE [Concomitant]
     Indication: PRODUCT USED FOR UNKNOWN INDICATION

REACTIONS (2)
  - Multiple sclerosis relapse [Recovering/Resolving]
  - Central nervous system lesion [Unknown]
